FAERS Safety Report 15336983 (Version 1)
Quarter: 2018Q4

REPORT INFORMATION
  Report Type: Spontaneous
  Country: US (occurrence: US)
  Receive Date: 20180831
  Receipt Date: 20180831
  Transmission Date: 20190204
  Serious: Yes (Other)
  Sender: FDA-Public Use
  Company Number: US-COLGATE PALMOLIVE COMPANY-20180802012

PATIENT

DRUGS (1)
  1. MSS ANTIPERSPIRANT [PLUS] UNSPECIFIED [Suspect]
     Active Substance: ALUMINUM CHLOROHYDRATE
     Dosage: UNKNOWN DOSE

REACTIONS (1)
  - Non-Hodgkin^s lymphoma [Unknown]
